FAERS Safety Report 12885601 (Version 2)
Quarter: 2017Q1

REPORT INFORMATION
  Report Type: Spontaneous
  Country: US (occurrence: US)
  Receive Date: 20161026
  Receipt Date: 20170223
  Transmission Date: 20170428
  Serious: No
  Sender: FDA-Public Use
  Company Number: US-TEVA-707330USA

PATIENT
  Sex: Female

DRUGS (1)
  1. COPAXONE [Suspect]
     Active Substance: GLATIRAMER ACETATE
     Indication: MULTIPLE SCLEROSIS
     Route: 058
     Dates: start: 201605

REACTIONS (3)
  - Adverse event [Unknown]
  - Injection site reaction [Not Recovered/Not Resolved]
  - Cystitis [Unknown]

NARRATIVE: CASE EVENT DATE: 2016
